FAERS Safety Report 9786538 (Version 1)
Quarter: 2013Q4

REPORT INFORMATION
  Report Type: Spontaneous
  Country: FI (occurrence: FI)
  Receive Date: 20131227
  Receipt Date: 20131227
  Transmission Date: 20140711
  Serious: Yes (Other)
  Sender: FDA-Public Use
  Company Number: FI-AMGEN-FINSP2013090264

PATIENT
  Age: 62 Year
  Sex: Female

DRUGS (8)
  1. XGEVA [Suspect]
     Indication: METASTASES TO BONE
     Dosage: UNK UNK, QMO
     Route: 058
     Dates: start: 201201, end: 201206
  2. FEMAR [Concomitant]
     Dosage: UNK UNK, QMO
  3. THYROXINE [Concomitant]
  4. SIMVASTATIN [Concomitant]
  5. PRIMASPAN [Concomitant]
  6. CALCICHEW D3 FORTE [Concomitant]
  7. SOMAC [Concomitant]
  8. ACYCLOVIR                          /00587301/ [Concomitant]

REACTIONS (1)
  - Osteonecrosis of jaw [Recovered/Resolved]
